FAERS Safety Report 17089879 (Version 1)
Quarter: 2019Q4

REPORT INFORMATION
  Report Type: Spontaneous
  Country: BR (occurrence: BR)
  Receive Date: 20191128
  Receipt Date: 20191128
  Transmission Date: 20200122
  Serious: Yes (Hospitalization, Other)
  Sender: FDA-Public Use
  Company Number: BR-SA-2019SA320063

PATIENT
  Sex: Female
  Weight: 70 kg

DRUGS (6)
  1. THIOCTACID [THIOCTIC ACID] [Concomitant]
     Indication: DIABETIC NEUROPATHY
     Dosage: UNK UNK, QD (1/2 TABLET)
     Route: 048
     Dates: start: 201905
  2. LANTUS [Suspect]
     Active Substance: INSULIN GLARGINE
     Dosage: 22 IU IN THE MORNING AND 12 IU AT NIGHT
     Route: 058
     Dates: start: 20191024
  3. HUMALOG [Concomitant]
     Active Substance: INSULIN LISPRO
     Indication: TYPE 1 DIABETES MELLITUS
     Dosage: 7 IU, TID
     Route: 058
     Dates: start: 2015
  4. TOTAVIT [Concomitant]
     Active Substance: MINERALS\VITAMINS
     Indication: NEUROPATHY PERIPHERAL
     Dosage: 300 MG, QD
     Route: 048
     Dates: start: 201905
  5. PREGABALIN. [Concomitant]
     Active Substance: PREGABALIN
     Indication: DIABETIC NEUROPATHY
     Dosage: 2 DF, QD
     Route: 048
     Dates: start: 201905
  6. LANTUS [Suspect]
     Active Substance: INSULIN GLARGINE
     Indication: TYPE 1 DIABETES MELLITUS
     Dosage: UNK, QD
     Route: 065
     Dates: start: 2014

REACTIONS (4)
  - Blood glucose increased [Recovered/Resolved]
  - Diabetic ketoacidosis [Recovered/Resolved]
  - Multiple use of single-use product [Unknown]
  - Inappropriate schedule of product administration [Unknown]

NARRATIVE: CASE EVENT DATE: 201911
